FAERS Safety Report 20737117 (Version 1)
Quarter: 2022Q2

REPORT INFORMATION
  Report Type: Spontaneous
  Country: US (occurrence: US)
  Receive Date: 20220421
  Receipt Date: 20220421
  Transmission Date: 20220721
  Serious: No
  Sender: FDA-Public Use
  Company Number: US-PFIZER INC-202101864596

PATIENT
  Age: 32 Year
  Sex: Female

DRUGS (1)
  1. EUCRISA [Suspect]
     Active Substance: CRISABOROLE
     Dosage: APPLY TOPICALLY TWO TIMES DAILY
     Route: 061

REACTIONS (2)
  - Application site pain [Unknown]
  - Product storage error [Unknown]
